FAERS Safety Report 12758452 (Version 1)
Quarter: 2016Q3

REPORT INFORMATION
  Report Type: Spontaneous
  Country: CH (occurrence: CH)
  Receive Date: 20160919
  Receipt Date: 20160919
  Transmission Date: 20161109
  Serious: Yes (Other)
  Sender: FDA-Public Use
  Company Number: CH-CELGENEUS-CHE-2016090892

PATIENT

DRUGS (1)
  1. OTEZLA [Suspect]
     Active Substance: APREMILAST
     Indication: PSORIATIC ARTHROPATHY
     Route: 048

REACTIONS (15)
  - Hypertension [Unknown]
  - Epistaxis [Unknown]
  - Drug ineffective [Unknown]
  - Therapy non-responder [Unknown]
  - Nausea [Unknown]
  - Headache [Unknown]
  - Diarrhoea [Unknown]
  - Arthralgia [Unknown]
  - Psoriasis [Unknown]
  - Defaecation urgency [Unknown]
  - Abdominal pain [Unknown]
  - Palpitations [Unknown]
  - Drug effect decreased [Unknown]
  - Back pain [Unknown]
  - Vomiting [Unknown]
